FAERS Safety Report 15530141 (Version 1)
Quarter: 2018Q4

REPORT INFORMATION
  Report Type: Spontaneous
  Country: US (occurrence: US)
  Receive Date: 20181018
  Receipt Date: 20181018
  Transmission Date: 20190205
  Serious: No
  Sender: FDA-Public Use
  Company Number: US-PFIZER INC-2018416231

PATIENT
  Sex: Male

DRUGS (2)
  1. CLEOCIN [Suspect]
     Active Substance: CLINDAMYCIN PHOSPHATE
     Indication: SWELLING FACE
     Dosage: 300 MG, UNK
     Dates: start: 201808
  2. CLEOCIN [Suspect]
     Active Substance: CLINDAMYCIN PHOSPHATE
     Indication: TOOTH ABSCESS

REACTIONS (3)
  - Ageusia [Unknown]
  - Hypogeusia [Not Recovered/Not Resolved]
  - Dysgeusia [Not Recovered/Not Resolved]
